FAERS Safety Report 5548733-8 (Version None)
Quarter: 2007Q4

REPORT INFORMATION
  Report Type: 
  Country: None (occurrence: None)
  Receive Date: 20071211
  Receipt Date: 20070410
  Transmission Date: 20080405
  Serious: No
  Sender: FDA-Public Use
  Company Number: US-AMGEN-KDL217310

PATIENT
  Sex: Female
  Weight: 53.1 kg

DRUGS (6)
  1. ENBREL [Suspect]
     Indication: RHEUMATOID ARTHRITIS
     Route: 058
     Dates: start: 20060308
  2. TRAMADOL HCL [Concomitant]
  3. ACTONEL [Concomitant]
  4. NAPROSYN [Concomitant]
  5. TRAZODONE HCL [Concomitant]
  6. PRILOSEC [Concomitant]

REACTIONS (12)
  - APHONIA [None]
  - FIBROMYALGIA [None]
  - GASTROOESOPHAGEAL REFLUX DISEASE [None]
  - HYPERLIPIDAEMIA [None]
  - JOINT SWELLING [None]
  - LARYNGITIS [None]
  - MALAISE [None]
  - NASOPHARYNGITIS [None]
  - NODULE ON EXTREMITY [None]
  - OSTEOPENIA [None]
  - PAIN IN EXTREMITY [None]
  - SINUSITIS [None]
